FAERS Safety Report 23171644 (Version 1)
Quarter: 2023Q4

REPORT INFORMATION
  Report Type: Spontaneous
  Country: MX (occurrence: None)
  Receive Date: 20231110
  Receipt Date: 20231110
  Transmission Date: 20240109
  Serious: Yes (Death)
  Sender: FDA-Public Use
  Company Number: 2023A256566

PATIENT
  Age: 62 Year
  Sex: Male

DRUGS (2)
  1. OSIMERTINIB [Suspect]
     Active Substance: OSIMERTINIB
     Indication: Lung adenocarcinoma
     Route: 048
     Dates: start: 20211025
  2. DENOSUMAB [Concomitant]
     Active Substance: DENOSUMAB
     Indication: Lung adenocarcinoma
     Dosage: 120 MG EVERY 4 WEEKS
     Route: 058
     Dates: start: 20211025

REACTIONS (4)
  - Malignant neoplasm progression [Fatal]
  - Acquired gene mutation [Fatal]
  - Metastases to central nervous system [Fatal]
  - Metastases to spinal cord [Fatal]

NARRATIVE: CASE EVENT DATE: 20220606
